FAERS Safety Report 17225729 (Version 1)
Quarter: 2019Q4

REPORT INFORMATION
  Report Type: Spontaneous
  Country: US (occurrence: US)
  Receive Date: 20191210
  Receipt Date: 20191210
  Transmission Date: 20200122
  Serious: Yes (Hospitalization)
  Sender: FDA-Public Use
  Company Number: None

PATIENT
  Age: 31 Year
  Sex: Male
  Weight: 84.3 kg

DRUGS (23)
  1. MONTELUKAST [Concomitant]
     Active Substance: MONTELUKAST SODIUM
  2. PANTOPRAZOLE [Concomitant]
     Active Substance: PANTOPRAZOLE
  3. FLORASTOR [Concomitant]
     Active Substance: SACCHAROMYCES CEREVISIAE
  4. ATENOLOL. [Suspect]
     Active Substance: ATENOLOL
  5. CINNAMON. [Concomitant]
     Active Substance: CINNAMON
  6. ELECTROLYTES [Concomitant]
     Active Substance: ELECTROLYTES NOS
  7. CEFEPIME [Suspect]
     Active Substance: CEFEPIME HYDROCHLORIDE
     Indication: PNEUMONIA BACTERIAL
     Dosage: ?          OTHER FREQUENCY:EVERY8HOURS;?
     Route: 042
     Dates: start: 20191127, end: 20191203
  8. PROAIR HFA [Concomitant]
     Active Substance: ALBUTEROL SULFATE
  9. TAMSULOSIN [Concomitant]
     Active Substance: TAMSULOSIN
  10. MULTIVITAMIN B COMPLEX [Concomitant]
  11. PREGABALIN. [Concomitant]
     Active Substance: PREGABALIN
  12. SAXAGLIPTIN [Concomitant]
     Active Substance: SAXAGLIPTIN
  13. LOSARTAN. [Concomitant]
     Active Substance: LOSARTAN
  14. GARLIC. [Concomitant]
     Active Substance: GARLIC
  15. ACETAMINOPHEN. [Concomitant]
     Active Substance: ACETAMINOPHEN
  16. VITAMIN C [Concomitant]
     Active Substance: ASCORBIC ACID
  17. DISOPYRAMIDE [Concomitant]
     Active Substance: DISOPYRAMIDE
  18. FOLIC ACID. [Concomitant]
     Active Substance: FOLIC ACID
  19. ALBUTEROL. [Concomitant]
     Active Substance: ALBUTEROL
  20. ATORVASTATIN [Concomitant]
     Active Substance: ATORVASTATIN
  21. DIPROLENE [Concomitant]
     Active Substance: BETAMETHASONE DIPROPIONATE
  22. HYDROCODONE [Concomitant]
     Active Substance: HYDROCODONE
  23. POLYETHYLENE GLYCOL [Concomitant]
     Active Substance: POLYETHYLENE GLYCOLS

REACTIONS (5)
  - Pruritus [None]
  - Adverse drug reaction [None]
  - Self-medication [None]
  - Rash [None]
  - Peripheral swelling [None]

NARRATIVE: CASE EVENT DATE: 20191203
